FAERS Safety Report 14204293 (Version 1)
Quarter: 2017Q4

REPORT INFORMATION
  Report Type: Spontaneous
  Country: MX (occurrence: MX)
  Receive Date: 20171120
  Receipt Date: 20171120
  Transmission Date: 20180321
  Serious: Yes (Other)
  Sender: FDA-Public Use
  Company Number: MX-009507513-1711MEX007215

PATIENT
  Age: 56 Year
  Sex: Male

DRUGS (1)
  1. KEYTRUDA [Suspect]
     Active Substance: PEMBROLIZUMAB
     Indication: TRANSITIONAL CELL CARCINOMA
     Dosage: 4 CYCLES
     Route: 042
     Dates: start: 201708

REACTIONS (2)
  - Off label use [Unknown]
  - Secondary hypothyroidism [Unknown]

NARRATIVE: CASE EVENT DATE: 201708
